FAERS Safety Report 17768467 (Version 2)
Quarter: 2020Q2

REPORT INFORMATION
  Report Type: Spontaneous
  Country: ES (occurrence: ES)
  Receive Date: 20200511
  Receipt Date: 20200514
  Transmission Date: 20200714
  Serious: No
  Sender: FDA-Public Use
  Company Number: ES-BAUSCH-BL-2020-013611

PATIENT
  Age: 87 Year
  Sex: Male

DRUGS (4)
  1. LATANOPROST. [Suspect]
     Active Substance: LATANOPROST
     Indication: PRODUCT USED FOR UNKNOWN INDICATION
     Dosage: 1-0-0
     Route: 047
  2. EMCONCOR COR [Suspect]
     Active Substance: BISOPROLOL
     Dosage: DOSE REDUCED BY HALF
     Route: 048
  3. EMCONCOR COR [Suspect]
     Active Substance: BISOPROLOL
     Indication: PRODUCT USED FOR UNKNOWN INDICATION
     Dosage: 1/2-0-1/2, STRENGTH 5 (UNSPECIFIED)
     Route: 048
  4. XALATAN [Suspect]
     Active Substance: LATANOPROST
     Indication: PRODUCT USED FOR UNKNOWN INDICATION
     Dosage: 1-0-0
     Route: 047

REACTIONS (3)
  - Dyspnoea [Recovered/Resolved]
  - Intentional product use issue [Unknown]
  - Product prescribing error [Unknown]
